FAERS Safety Report 6996720-5 (Version None)
Quarter: 2010Q3

REPORT INFORMATION
  Report Type: 
  Country: None (occurrence: None)
  Receive Date: 20100918
  Receipt Date: 20090630
  Transmission Date: 20110219
  Serious: No
  Sender: FDA-Public Use
  Company Number: US-WYE-H09666409

PATIENT
  Sex: Female

DRUGS (3)
  1. EFFEXOR XR [Suspect]
     Indication: AFFECTIVE DISORDER
     Route: 048
     Dates: start: 20070901
  2. XANAX [Concomitant]
  3. ADDERALL XR 10 [Concomitant]

REACTIONS (1)
  - DRUG SCREEN POSITIVE [None]
